FAERS Safety Report 6611538-0 (Version None)
Quarter: 2010Q1

REPORT INFORMATION
  Report Type: 
  Country: None (occurrence: None)
  Receive Date: 20100303
  Receipt Date: 20100222
  Transmission Date: 20100710
  Serious: Yes (Death)
  Sender: FDA-Public Use
  Company Number: PHHY2010CN10637

PATIENT
  Age: 60 Year
  Sex: Female

DRUGS (3)
  1. GLEEVEC [Suspect]
     Indication: BLAST CRISIS IN MYELOGENOUS LEUKAEMIA
     Dosage: 400 MG, QD
     Dates: start: 20070521
  2. GLEEVEC [Suspect]
     Dosage: 600 MG/DAY
  3. ARA-C [Concomitant]
     Dosage: 50 MG, UNK

REACTIONS (2)
  - CEREBRAL HAEMORRHAGE [None]
  - THERAPEUTIC RESPONSE DECREASED [None]
